FAERS Safety Report 10681787 (Version 1)
Quarter: 2014Q4

REPORT INFORMATION
  Report Type: Spontaneous
  Country: AR (occurrence: None)
  Receive Date: 20141224
  Receipt Date: 20141224
  Transmission Date: 20150529
  Serious: Yes (Congenital Anomaly, Other)
  Sender: FDA-Public Use
  Company Number: AR-ALKEM-000786

PATIENT
  Sex: Female
  Weight: 2.37 kg

DRUGS (5)
  1. MYCOPHENOLTE MOFETIL [Suspect]
     Active Substance: MYCOPHENOLATE MOFETIL
     Indication: SYSTEMIC LUPUS ERYTHEMATOSUS
     Route: 064
  2. AZATHIOPRINE (AZATHIOPRINE) [Suspect]
     Active Substance: AZATHIOPRINE
     Indication: SYSTEMIC LUPUS ERYTHEMATOSUS
     Route: 064
  3. CALCIUM (CALCIUM) [Suspect]
     Active Substance: CALCIUM
     Indication: SYSTEMIC LUPUS ERYTHEMATOSUS
     Route: 064
  4. PREDNISOLONE (PREDNISOLONE) [Suspect]
     Active Substance: PREDNISOLONE
     Indication: SYSTEMIC LUPUS ERYTHEMATOSUS
     Route: 064
  5. HYDROXYCHLOROQUINE( [Suspect]
     Active Substance: HYDROXYCHLOROQUINE
     Indication: SYSTEMIC LUPUS ERYTHEMATOSUS
     Route: 064

REACTIONS (11)
  - Hypertelorism of orbit [None]
  - Patent ductus arteriosus [None]
  - Maternal drugs affecting foetus [None]
  - Spine malformation [None]
  - Choroidal coloboma [None]
  - Cleft lip and palate [None]
  - Iris coloboma [None]
  - Retinal coloboma [None]
  - Microtia [None]
  - External auditory canal atresia [None]
  - Oesophageal atresia [None]
